FAERS Safety Report 22032463 (Version 1)
Quarter: 2023Q1

REPORT INFORMATION
  Report Type: Spontaneous
  Country: US (occurrence: US)
  Receive Date: 20230224
  Receipt Date: 20230224
  Transmission Date: 20230417
  Serious: No
  Sender: FDA-Public Use
  Company Number: US-BEH-2023155567

PATIENT
  Sex: Male

DRUGS (3)
  1. HIZENTRA [Suspect]
     Active Substance: HUMAN IMMUNOGLOBULIN G
     Indication: Immunodeficiency
     Dosage: 4 GRAM ,EVERY 5 DAYS
     Route: 058
     Dates: start: 20220711
  2. HIZENTRA [Suspect]
     Active Substance: HUMAN IMMUNOGLOBULIN G
     Dosage: 1 GRAM,EVERY 5 DAYS
     Route: 058
     Dates: start: 20220711
  3. HIZENTRA [Suspect]
     Active Substance: HUMAN IMMUNOGLOBULIN G
     Dosage: 10 GRAM,EVERY 5 DAYS
     Route: 058
     Dates: start: 20220711

REACTIONS (6)
  - Infusion site pain [Unknown]
  - Weight decreased [Unknown]
  - Product use issue [Unknown]
  - Injection site haemorrhage [Unknown]
  - Weight decreased [Unknown]
  - Product use issue [Unknown]
